FAERS Safety Report 9194289 (Version 2)
Quarter: 2013Q2

REPORT INFORMATION
  Report Type: Spontaneous
  Country: US (occurrence: US)
  Receive Date: 20130327
  Receipt Date: 20130603
  Transmission Date: 20140414
  Serious: Yes (Hospitalization)
  Sender: FDA-Public Use
  Company Number: US-FRI-1000043679

PATIENT
  Age: 67 Year
  Sex: Female
  Weight: 54.43 kg

DRUGS (4)
  1. ESCITALOPRAM [Suspect]
     Indication: DEPRESSION
     Dosage: 10MG
     Route: 048
     Dates: start: 201210
  2. ESCITALOPRAM [Suspect]
     Dosage: 20MG
     Route: 048
     Dates: end: 20130205
  3. SONATA [Suspect]
     Indication: INSOMNIA
     Dosage: 10MG AS NEEDED
  4. VALIUM [Suspect]
     Indication: BACK PAIN
     Dosage: 5MG AS NEEDED

REACTIONS (4)
  - Suicide attempt [Recovered/Resolved]
  - Intentional overdose [Recovered/Resolved]
  - Depression [Recovered/Resolved]
  - Drug ineffective [Recovered/Resolved]
